FAERS Safety Report 5170658-0 (Version None)
Quarter: 2006Q4

REPORT INFORMATION
  Report Type: 
  Country: None (occurrence: None)
  Receive Date: 20061205
  Receipt Date: 20061121
  Transmission Date: 20070319
  Serious: Yes (Other)
  Sender: FDA-Public Use
  Company Number: 2006SP006973

PATIENT
  Age: 63 Year
  Sex: Male
  Weight: 73 kg

DRUGS (5)
  1. DESLORATADINE [Suspect]
     Dosage: 5 MG;PO
     Route: 048
  2. XATRAL              (ALFUZOSIN) [Suspect]
     Dosage: 10 MG; PO
     Route: 048
  3. AMIODARONE HCL [Concomitant]
  4. DIGOXIN [Concomitant]
  5. VITAMIN B6 [Concomitant]

REACTIONS (7)
  - BUNDLE BRANCH BLOCK LEFT [None]
  - DIZZINESS [None]
  - ELECTROCARDIOGRAM QT PROLONGED [None]
  - HYPERHIDROSIS [None]
  - LOSS OF CONSCIOUSNESS [None]
  - SINUS BRADYCARDIA [None]
  - SYNCOPE [None]
